FAERS Safety Report 5834003-7 (Version None)
Quarter: 2008Q3

REPORT INFORMATION
  Report Type: 
  Country: None (occurrence: None)
  Receive Date: 20080804
  Receipt Date: 20080804
  Transmission Date: 20090109
  Serious: Yes (Other)
  Sender: FDA-Public Use
  Company Number: None

PATIENT
  Age: 29 Year
  Sex: Female
  Weight: 66.6788 kg

DRUGS (4)
  1. SERTRALINE [Suspect]
     Indication: ANXIETY
     Dosage: 50 MG DAILY ORAL
     Route: 048
     Dates: start: 20080425, end: 20080502
  2. SERTRALINE [Suspect]
     Indication: DEPRESSION
     Dosage: 50 MG DAILY ORAL
     Route: 048
     Dates: start: 20080425, end: 20080502
  3. SERTRALINE [Suspect]
     Indication: ANXIETY
     Dosage: 50 MG DAILY ORAL
     Route: 048
     Dates: start: 20080518, end: 20080522
  4. SERTRALINE [Suspect]
     Indication: DEPRESSION
     Dosage: 50 MG DAILY ORAL
     Route: 048
     Dates: start: 20080518, end: 20080522

REACTIONS (10)
  - ANXIETY [None]
  - BRUXISM [None]
  - CONDITION AGGRAVATED [None]
  - DIZZINESS [None]
  - HEADACHE [None]
  - INSOMNIA [None]
  - NAUSEA [None]
  - NERVOUSNESS [None]
  - RESTLESSNESS [None]
  - THERAPEUTIC RESPONSE UNEXPECTED WITH DRUG SUBSTITUTION [None]
